FAERS Safety Report 7653498-X (Version None)
Quarter: 2011Q3

REPORT INFORMATION
  Report Type: 
  Country: None (occurrence: None)
  Receive Date: 20110803
  Receipt Date: 20110726
  Transmission Date: 20111222
  Serious: Yes (Death, Hospitalization, Other)
  Sender: FDA-Public Use
  Company Number: US-BAYER-200939677NA

PATIENT
  Age: 54 Year
  Sex: Male
  Weight: 92.063 kg

DRUGS (20)
  1. EPINEPHRINE [Concomitant]
     Dosage: DOSAGE TITRATED
     Route: 042
  2. FRESH FROZEN PLASMA [Concomitant]
     Dosage: 6 U, ONCE
     Route: 042
     Dates: start: 20041011, end: 20041012
  3. VANCOMYCIN [Concomitant]
     Dosage: 1.5 G, UNK
     Route: 042
  4. CORDARONE [Concomitant]
     Dosage: 200 MG, BID
     Route: 048
  5. TOPROL-XL [Concomitant]
     Dosage: 150 MG, ONCE
     Route: 048
  6. RISPERDAL [Concomitant]
     Dosage: 0.5 MG, ONCE
     Route: 048
  7. PLATELETS [Concomitant]
     Dosage: 10 U, ONCE
     Route: 042
     Dates: start: 20041011, end: 20041012
  8. ALDACTONE [Concomitant]
     Dosage: 25 MG, ONCE
     Route: 048
  9. ALTACE [Concomitant]
     Dosage: 5 MG, ONCE
     Route: 048
  10. VALGANCICLOVIR [Concomitant]
     Dosage: 450 MG, Q3WK
     Route: 048
  11. ACETYLSALICYLIC ACID SRT [Concomitant]
     Dosage: 325 MG, ONCE
     Route: 048
  12. NEXIUM [Concomitant]
     Dosage: 40 MG, ONCE
     Route: 048
  13. METHOTREXATE [Concomitant]
     Dosage: 10 MG, OW
     Route: 048
  14. TRASYLOL [Suspect]
     Indication: PRODUCT USED FOR UNKNOWN INDICATION
     Dosage: 200 ML, ONCE, LOADING DOSE
     Route: 042
     Dates: start: 20041011, end: 20041012
  15. RED BLOOD CELLS [Concomitant]
     Dosage: 2 U, ONCE
     Route: 042
     Dates: start: 20041011, end: 20041012
  16. PROTAMINE [Concomitant]
     Dosage: 400 MG, UNK
     Route: 042
  17. LASIX [Concomitant]
     Dosage: 40 MG, BID
     Route: 048
  18. TRASYLOL [Suspect]
     Dosage: 50 ML INFUSION
     Route: 042
     Dates: start: 20041011, end: 20041012
  19. HEPARIN [Concomitant]
     Dosage: DOSAGE TITRATED
     Route: 042
  20. LIPITOR [Concomitant]
     Dosage: 10 MG, ONCE
     Route: 048

REACTIONS (15)
  - DEATH [None]
  - MULTI-ORGAN FAILURE [None]
  - CARDIOGENIC SHOCK [None]
  - RENAL IMPAIRMENT [None]
  - PAIN [None]
  - RENAL INJURY [None]
  - STRESS [None]
  - ANXIETY [None]
  - UNEVALUABLE EVENT [None]
  - RENAL FAILURE [None]
  - CEREBROVASCULAR ACCIDENT [None]
  - INJURY [None]
  - FEAR [None]
  - EMOTIONAL DISTRESS [None]
  - ANHEDONIA [None]
